FAERS Safety Report 16747725 (Version 1)
Quarter: 2019Q3

REPORT INFORMATION
  Report Type: Spontaneous
  Country: FR (occurrence: FR)
  Receive Date: 20190827
  Receipt Date: 20190827
  Transmission Date: 20191005
  Serious: Yes (Other)
  Sender: FDA-Public Use
  Company Number: FR-009507513-1908FRA007771

PATIENT
  Age: 32 Year
  Sex: Female
  Weight: 53 kg

DRUGS (1)
  1. NUVARING [Suspect]
     Active Substance: ETHINYL ESTRADIOL\ETONOGESTREL
     Indication: CONTRACEPTION
     Dosage: 1 DOSAGE FORM, 1 TOTAL
     Route: 067
     Dates: start: 20190210, end: 20190728

REACTIONS (2)
  - Drug ineffective [Recovered/Resolved]
  - Pregnancy [Recovered/Resolved]

NARRATIVE: CASE EVENT DATE: 20190630
